FAERS Safety Report 8274827-2 (Version None)
Quarter: 2012Q2

REPORT INFORMATION
  Report Type: 
  Country: None (occurrence: None)
  Receive Date: 20120411
  Receipt Date: 20120404
  Transmission Date: 20120825
  Serious: Yes (Hospitalization, Other)
  Sender: FDA-Public Use
  Company Number: US-ALEXION PHARMACEUTICALS INC.-A201200464

PATIENT
  Sex: Male

DRUGS (1)
  1. SOLIRIS [Suspect]
     Indication: PAROXYSMAL NOCTURNAL HAEMOGLOBINURIA
     Dosage: UNK
     Route: 042

REACTIONS (13)
  - PYREXIA [None]
  - OEDEMA PERIPHERAL [None]
  - MUSCULOSKELETAL STIFFNESS [None]
  - DIVERTICULUM [None]
  - JAUNDICE [None]
  - STAPHYLOCOCCAL INFECTION [None]
  - NASAL INFLAMMATION [None]
  - VOMITING [None]
  - ABDOMINAL PAIN UPPER [None]
  - LARGE INTESTINE PERFORATION [None]
  - ARTHROPOD BITE [None]
  - BLOOD COUNT ABNORMAL [None]
  - CHILLS [None]
